FAERS Safety Report 7429610-4 (Version None)
Quarter: 2011Q2

REPORT INFORMATION
  Report Type: 
  Country: None (occurrence: None)
  Receive Date: 20110421
  Receipt Date: 20110328
  Transmission Date: 20111010
  Serious: Yes (Hospitalization)
  Sender: FDA-Public Use
  Company Number: B0710602A

PATIENT
  Age: 45 Year
  Sex: Male

DRUGS (1)
  1. ARIXTRA [Suspect]
     Indication: PROPHYLAXIS
     Route: 065

REACTIONS (4)
  - PULMONARY EMBOLISM [None]
  - SEPTIC SHOCK [None]
  - NEOPLASM MALIGNANT [None]
  - HEPARIN RESISTANCE [None]
